FAERS Safety Report 8768715 (Version 1)
Quarter: 2012Q4

REPORT INFORMATION
  Report Type: 
  Country: US (occurrence: US)
  Receive Date: 20120904
  Receipt Date: 20120904
  Transmission Date: 20130627
  Serious: No
  Sender: FDA-Public Use
  Company Number: US-AMGEN-USASP2012050925

PATIENT
  Age: 83 Year
  Sex: Female
  Weight: 72.56 kg

DRUGS (3)
  1. ENBREL [Suspect]
     Indication: PSORIASIS
     Dosage: 50 mg, 2 times/wk
     Dates: start: 20120810
  2. ENBREL [Suspect]
     Indication: PSORIATIC ARTHROPATHY
  3. CELEBREX [Concomitant]
     Dosage: UNK
     Route: 058
     Dates: start: 20120812

REACTIONS (2)
  - Headache [Recovered/Resolved]
  - Diarrhoea [Not Recovered/Not Resolved]
